FAERS Safety Report 21492071 (Version 1)
Quarter: 2022Q4

REPORT INFORMATION
  Report Type: Spontaneous
  Country: US (occurrence: US)
  Receive Date: 20221021
  Receipt Date: 20221021
  Transmission Date: 20230112
  Serious: Yes (Other)
  Sender: FDA-Public Use
  Company Number: US-ORGANON-O2210USA000858

PATIENT
  Age: 84 Year
  Sex: Male
  Weight: 68.481 kg

DRUGS (32)
  1. SINGULAIR [Suspect]
     Active Substance: MONTELUKAST SODIUM
     Indication: Hypersensitivity
     Dosage: 1 TABLET BY MOUTH EVERY DAY AT BED TIME
     Route: 048
  2. ZOCOR [Suspect]
     Active Substance: SIMVASTATIN
     Indication: Blood cholesterol increased
     Dosage: 1 TABLET BY MOUTH EVERY DAY AT BED TIME
     Route: 048
  3. VYNDAMAX [Suspect]
     Active Substance: TAFAMIDIS
     Indication: Amyloidosis
     Dosage: 1 CAPSULE BY MOUTH ONCE DAILY
     Route: 048
  4. VYNDAMAX [Suspect]
     Active Substance: TAFAMIDIS
     Indication: Cardiomyopathy
  5. ALBUTEROL SULFATE [Suspect]
     Active Substance: ALBUTEROL SULFATE
     Indication: Asthma
     Dosage: 2.5 MILLIGRAM/3 MILLILITER (0.083 PERCENT), BID
     Route: 048
  6. ALBUTEROL SULFATE [Suspect]
     Active Substance: ALBUTEROL SULFATE
     Indication: Chronic obstructive pulmonary disease
  7. ALBUTEROL SULFATE [Suspect]
     Active Substance: ALBUTEROL SULFATE
     Indication: Asthma
     Dosage: STRENGTH REPORTED AS 90 MICROGRAM/ACTUATION
     Route: 048
  8. ALBUTEROL SULFATE [Suspect]
     Active Substance: ALBUTEROL SULFATE
     Indication: Chronic obstructive pulmonary disease
  9. BUDESONIDE\FORMOTEROL\GLYCOPYRRONIUM [Suspect]
     Active Substance: BUDESONIDE\FORMOTEROL\GLYCOPYRRONIUM
     Indication: Asthma
     Dosage: STRENGTH: 160 (+) 9 (+) 4.8 MICROGRAM/ACTUATION
     Route: 048
  10. BUDESONIDE\FORMOTEROL\GLYCOPYRRONIUM [Suspect]
     Active Substance: BUDESONIDE\FORMOTEROL\GLYCOPYRRONIUM
     Indication: Chronic obstructive pulmonary disease
  11. CETIRIZINE HCL [Suspect]
     Active Substance: CETIRIZINE HYDROCHLORIDE
     Indication: Hypersensitivity
     Dosage: 1 TABLET BY MOUTH ONCE DAILY
     Route: 048
  12. COENZYME Q10 [Suspect]
     Active Substance: DIETARY SUPPLEMENT\UBIDECARENONE
     Indication: Routine health maintenance
     Dosage: 1 CAPSULE BY MOUTH ONCE DAILY
     Route: 048
  13. BREO ELLIPTA [Suspect]
     Active Substance: FLUTICASONE FUROATE\VILANTEROL TRIFENATATE
     Indication: Asthma
     Dosage: 100 (+) 25 MCG/INHALATION (INH) AERO POWER ACT, 1 INHALATION DAILY
     Route: 048
  14. BREO ELLIPTA [Suspect]
     Active Substance: FLUTICASONE FUROATE\VILANTEROL TRIFENATATE
     Indication: Chronic obstructive pulmonary disease
  15. FLUTICASONE PROPIONATE [Suspect]
     Active Substance: FLUTICASONE PROPIONATE
     Indication: Hypersensitivity
     Dosage: STRENGTH: 50 MCG/ACT
     Route: 045
  16. FUROSEMIDE [Suspect]
     Active Substance: FUROSEMIDE
     Indication: Fluid retention
     Dosage: 1/2 TABLET (20 MILLIGRAM) BY MOUTH 2 OR 3 TIMES A WEEK
     Route: 048
  17. GARLIC [Suspect]
     Active Substance: GARLIC
     Indication: Routine health maintenance
     Dosage: 1 CAPSULE BY MOUTH ONCE DAILY
     Route: 048
  18. HYDRALAZINE HCL [Suspect]
     Active Substance: HYDRALAZINE HYDROCHLORIDE
     Indication: Hypertension
     Dosage: 1 TABLET BY MOUTH THRICE DAILY
     Route: 048
  19. IRON [Suspect]
     Active Substance: IRON
     Indication: Blood iron decreased
     Dosage: 3 TABLET BY MOUTH ONCE WEEKLY WITH LUNCH
     Route: 048
  20. MAGNESIUM [Suspect]
     Active Substance: MAGNESIUM
     Indication: Routine health maintenance
     Dosage: 3 TABLET BY MOUTH ONCE WEEKLY
     Route: 048
  21. CALCIUM [Suspect]
     Active Substance: CALCIUM
     Indication: Calcium deficiency
     Dosage: TAKE 3 TABLET BY MOUTH WEEKLY
     Route: 048
  22. DIETARY SUPPLEMENT [Suspect]
     Active Substance: DIETARY SUPPLEMENT
     Indication: Routine health maintenance
     Dosage: 3 CAPSULE BY MOUTH ONCE DAILY
     Route: 048
  23. OMEPRAZOLE [Suspect]
     Active Substance: OMEPRAZOLE
     Indication: Gastrointestinal disorder prophylaxis
     Dosage: 1 CAPSULE BY MOUTH TWICE DAILY AS NEEDED
     Route: 048
  24. POTASSIUM [Suspect]
     Active Substance: POTASSIUM
     Indication: Routine health maintenance
     Dosage: 3 TABLET BY MOUTH ONCE WEEKLY
     Route: 048
  25. HERBALS\SAW PALMETTO [Suspect]
     Active Substance: HERBALS\SAW PALMETTO
     Indication: Routine health maintenance
     Dosage: 1 CAPSULE BY MOUTH ONCE DAILY
     Route: 048
  26. TAMSULOSIN HYDROCHLORIDE [Suspect]
     Active Substance: TAMSULOSIN HYDROCHLORIDE
     Indication: Prostatomegaly
     Dosage: 1 CAPSULE BY MOUTH ONCE DAILY AT NIGHT
     Route: 048
  27. HERBALS\TURMERIC [Suspect]
     Active Substance: HERBALS\TURMERIC
     Indication: Routine health maintenance
     Dosage: 4 CAPSULE BY MOUTH WEEKLY
     Route: 048
  28. VITAMIN C [Suspect]
     Active Substance: ASCORBIC ACID
     Indication: Routine health maintenance
     Dosage: 1 TABLET BY MOUTH ONCE DAILY
     Route: 048
  29. VITAMIN D3 [Suspect]
     Active Substance: CHOLECALCIFEROL
     Indication: Vitamin D decreased
     Dosage: 5000 INTERNATIONAL UNIT (IU) TAKE 1 TABLET BY MOUTH ONCE DAILY
     Route: 048
  30. VITAMIN E [Suspect]
     Active Substance: .ALPHA.-TOCOPHEROL
     Indication: Routine health maintenance
     Dosage: 1 CAPSULE BY MOUTH ONCE DAILY
     Route: 048
  31. WARFARIN SODIUM [Suspect]
     Active Substance: WARFARIN SODIUM
     Indication: Anticoagulant therapy
     Dosage: 1/2 TABLET (3.75 MG) BY MOUTH ONE TIME A DAY ON SUNDAYS, TUESDAYS, WEDNESDAYS, AND THURSDAYS. THEN T
     Route: 048
  32. ZINC [Suspect]
     Active Substance: ZINC
     Indication: Routine health maintenance
     Dosage: ONE TABLET BY MOUTH ONCE DAILY
     Route: 048

REACTIONS (2)
  - Dementia Alzheimer^s type [Recovering/Resolving]
  - Adverse event [Unknown]

NARRATIVE: CASE EVENT DATE: 20220801
